FAERS Safety Report 12075387 (Version 10)
Quarter: 2019Q1

REPORT INFORMATION
  Report Type: Spontaneous
  Country: US (occurrence: US)
  Receive Date: 20160213
  Receipt Date: 20190128
  Transmission Date: 20190417
  Serious: Yes (Other)
  Sender: FDA-Public Use
  Company Number: PHEH2016US003262

PATIENT
  Age: 21 Year
  Sex: Female

DRUGS (3)
  1. ZOFRAN [Suspect]
     Active Substance: ONDANSETRON HYDROCHLORIDE
     Indication: MORNING SICKNESS
     Dosage: 4 MG, PRN, AS NEEDED
     Route: 048
     Dates: start: 201302
  2. ONDANSETRON [Suspect]
     Active Substance: ONDANSETRON
     Indication: MORNING SICKNESS
     Dosage: 4 MG, PRN, AS NEEDED
     Route: 065
     Dates: start: 201304
  3. ZOFRAN [Suspect]
     Active Substance: ONDANSETRON HYDROCHLORIDE
     Indication: MORNING SICKNESS
     Dosage: 8 MG, ONCE/SINGLE
     Route: 042
     Dates: start: 20130601, end: 20130601

REACTIONS (14)
  - Complication of pregnancy [Unknown]
  - Oligohydramnios [Unknown]
  - Breech presentation [Unknown]
  - Pain [Unknown]
  - Emotional distress [Unknown]
  - Anxiety [Unknown]
  - Oropharyngeal pain [Unknown]
  - Anhedonia [Unknown]
  - Urinary tract infection [Unknown]
  - Maternal exposure during pregnancy [Unknown]
  - Injury [Unknown]
  - Product use in unapproved indication [Unknown]
  - Premature delivery [Unknown]
  - Dizziness [Unknown]

NARRATIVE: CASE EVENT DATE: 20131107
